FAERS Safety Report 7074570-1 (Version None)
Quarter: 2010Q4

REPORT INFORMATION
  Report Type: 
  Country: None (occurrence: None)
  Receive Date: 20101029
  Receipt Date: 20091021
  Transmission Date: 20110411
  Serious: No
  Sender: FDA-Public Use
  Company Number: A0745035A

PATIENT
  Sex: Female

DRUGS (3)
  1. IMITREX [Suspect]
     Indication: MIGRAINE
     Route: 045
  2. IMITREX [Suspect]
     Route: 048
  3. IMITREX [Suspect]

REACTIONS (6)
  - DYSPNOEA [None]
  - FEAR [None]
  - HANGOVER [None]
  - INCORRECT DOSE ADMINISTERED [None]
  - PAIN [None]
  - PRODUCT QUALITY ISSUE [None]
